FAERS Safety Report 23512350 (Version 1)
Quarter: 2024Q1

REPORT INFORMATION
  Report Type: Report from Study
  Country: US (occurrence: None)
  Receive Date: 20240212
  Receipt Date: 20240212
  Transmission Date: 20240409
  Serious: Yes (Death, Other)
  Sender: FDA-Public Use
  Company Number: 2024A034945

PATIENT
  Age: 29003 Day
  Sex: Female

DRUGS (1)
  1. IMFINZI [Suspect]
     Active Substance: DURVALUMAB
     Indication: Illness
     Dosage: EVERY 21 DAYS
     Route: 042
     Dates: start: 202401

REACTIONS (1)
  - Death [Fatal]

NARRATIVE: CASE EVENT DATE: 20240108
